FAERS Safety Report 19691393 (Version 2)
Quarter: 2021Q4

REPORT INFORMATION
  Report Type: Report from Study
  Country: BR (occurrence: BR)
  Receive Date: 20210812
  Receipt Date: 20211008
  Transmission Date: 20220303
  Serious: Yes (Other)
  Sender: FDA-Public Use
  Company Number: BR-UCBSA-2021037323

PATIENT
  Age: 37 Year
  Sex: Female
  Weight: 73.1 kg

DRUGS (4)
  1. CIMZIA [Suspect]
     Active Substance: CERTOLIZUMAB PEGOL
     Indication: Rheumatoid arthritis
     Dosage: 200 MILLIGRAM, EV 15 DAYS
     Route: 058
     Dates: start: 20191002, end: 20210609
  2. ACYCLOVIR [Concomitant]
     Active Substance: ACYCLOVIR
     Indication: Mouth injury
     Dosage: UNK
     Route: 061
  3. CEFALEXINA [CEFALEXIN] [Concomitant]
     Indication: Urinary tract infection
     Dosage: UNK UNK, 2X/DAY (BID)
     Route: 048
     Dates: start: 202105, end: 202105
  4. NORFLOXACIN [Concomitant]
     Active Substance: NORFLOXACIN
     Indication: Urinary tract infection
     Dosage: UNK, 3X/DAY (TID)
     Route: 048
     Dates: start: 202105, end: 202105

REACTIONS (7)
  - Urinary tract infection [Recovered/Resolved]
  - Abortion [Unknown]
  - Mouth injury [Recovered/Resolved]
  - Feeling hot [Recovered/Resolved]
  - Adverse event [Unknown]
  - Maternal exposure during pregnancy [Unknown]
  - Maternal exposure before pregnancy [Unknown]

NARRATIVE: CASE EVENT DATE: 20191002
